FAERS Safety Report 8999215 (Version 2)
Quarter: 2013Q2

REPORT INFORMATION
  Report Type: Spontaneous
  Country: US (occurrence: US)
  Receive Date: 20130103
  Receipt Date: 20130515
  Transmission Date: 20140414
  Serious: Yes (Other)
  Sender: FDA-Public Use
  Company Number: US-ELI_LILLY_AND_COMPANY-US201212008190

PATIENT
  Sex: Female

DRUGS (3)
  1. ZYPREXA [Suspect]
     Dosage: 2.5 MG, QD
     Route: 048
     Dates: start: 201210
  2. ZYPREXA [Suspect]
     Dosage: 2.5 MG, QD
     Dates: start: 20130130
  3. OLANZAPINE [Suspect]
     Dosage: 2.5 MG, QD
     Route: 048
     Dates: start: 20120905, end: 201210

REACTIONS (5)
  - Cardiac failure congestive [Unknown]
  - Pulmonary embolism [Unknown]
  - Clostridium difficile infection [Unknown]
  - Protrusion tongue [Recovered/Resolved]
  - Dyskinesia [Unknown]
